FAERS Safety Report 13405475 (Version 3)
Quarter: 2017Q2

REPORT INFORMATION
  Report Type: Spontaneous
  Country: US (occurrence: US)
  Receive Date: 20170405
  Receipt Date: 20170524
  Transmission Date: 20170830
  Serious: No
  Sender: FDA-Public Use
  Company Number: US-PFIZER INC-2017145013

PATIENT
  Age: 77 Year
  Sex: Female

DRUGS (1)
  1. BACTINE [Suspect]
     Active Substance: BENZALKONIUM CHLORIDE\LIDOCAINE
     Dosage: UNK

REACTIONS (2)
  - Drug hypersensitivity [Unknown]
  - Fall [Unknown]
